FAERS Safety Report 8852360 (Version 4)
Quarter: 2013Q3

REPORT INFORMATION
  Report Type: Report from Study
  Country: JP (occurrence: JP)
  Receive Date: 20121022
  Receipt Date: 20130830
  Transmission Date: 20140515
  Serious: Yes (Hospitalization)
  Sender: FDA-Public Use
  Company Number: JP-VERTEX PHARMACEUTICAL INC.-2012-023229

PATIENT
  Age: 61 Year
  Sex: Female

DRUGS (7)
  1. VX-950 (TELAPREVIR) [Suspect]
     Indication: CHRONIC HEPATITIS C
     Dosage: 1500 MG, QD
     Route: 048
     Dates: start: 20120316, end: 20120608
  2. REBETOL [Suspect]
     Indication: CHRONIC HEPATITIS C
     Dosage: 600 MG, QD
     Route: 048
     Dates: start: 20120316, end: 20120831
  3. PEGINTRON [Suspect]
     Indication: CHRONIC HEPATITIS C
     Dosage: 1.2 ?G/KG, QW
     Route: 058
     Dates: start: 20120316
  4. PEGINTRON [Suspect]
     Dosage: 1.3 ?G/KG, QW
     Route: 058
     Dates: end: 20130824
  5. GASMOTIN [Concomitant]
     Dosage: 15 MG, QD
     Route: 048
     Dates: start: 20120316, end: 20120831
  6. CELESTAMINE [Concomitant]
     Dosage: 3 DF, QD
     Route: 048
     Dates: start: 20120316, end: 20120622
  7. ALLOZYM [Concomitant]
     Dosage: 200 MG, QD
     Route: 048
     Dates: start: 20120316, end: 20120608

REACTIONS (1)
  - Gastrooesophageal reflux disease [Recovered/Resolved]
